FAERS Safety Report 4696270-5 (Version None)
Quarter: 2005Q2

REPORT INFORMATION
  Report Type: 
  Country: None (occurrence: None)
  Receive Date: 20050620
  Receipt Date: 20050607
  Transmission Date: 20051028
  Serious: Yes (Other)
  Sender: FDA-Public Use
  Company Number: 2004104058

PATIENT
  Age: 74 Year
  Sex: Female
  Weight: 77.1115 kg

DRUGS (3)
  1. CELEBREX [Suspect]
     Indication: NEURALGIA
     Dosage: 200 MG (200 MG, 1 IN 1 D), ORAL
     Route: 048
     Dates: end: 20040101
  2. DETROL LA [Suspect]
     Indication: URINARY INCONTINENCE
     Dosage: 4 MG (4 MG, 1I N 1 D), ORAL
     Route: 048
     Dates: start: 20041201
  3. TYLENOL [Concomitant]

REACTIONS (10)
  - ABASIA [None]
  - ALOPECIA [None]
  - ARTHRALGIA [None]
  - BACK PAIN [None]
  - DRUG INEFFECTIVE [None]
  - HYPOTRICHOSIS [None]
  - NEURALGIA [None]
  - PAIN IN EXTREMITY [None]
  - RENAL CELL CARCINOMA STAGE UNSPECIFIED [None]
  - URGE INCONTINENCE [None]
